FAERS Safety Report 19765362 (Version 2)
Quarter: 2021Q4

REPORT INFORMATION
  Report Type: Report from Study
  Country: US (occurrence: US)
  Receive Date: 20210830
  Receipt Date: 20211227
  Transmission Date: 20220303
  Serious: No
  Sender: FDA-Public Use
  Company Number: US-NOVARTISTESTPH-NVSC2021US195256

PATIENT
  Age: 77 Year
  Sex: Male

DRUGS (3)
  1. ENTRESTO [Suspect]
     Active Substance: SACUBITRIL\VALSARTAN
     Indication: Cardiac failure
     Dosage: 1 DF, (49.51 MG), BID
     Route: 048
     Dates: start: 2015
  2. ENTRESTO [Suspect]
     Active Substance: SACUBITRIL\VALSARTAN
     Indication: Cardiac failure
  3. ISOSORBIDE [Concomitant]
     Active Substance: ISOSORBIDE
     Indication: Cardiac disorder
     Dosage: UNK, QD
     Route: 048
     Dates: start: 2010

REACTIONS (6)
  - Fluid retention [Unknown]
  - Chest discomfort [Unknown]
  - Abdominal distension [Recovered/Resolved]
  - Dyspnoea [Unknown]
  - Flatulence [Recovered/Resolved]
  - Fructose intolerance [Recovered/Resolved]

NARRATIVE: CASE EVENT DATE: 20210101
